FAERS Safety Report 7689071-7 (Version None)
Quarter: 2011Q3

REPORT INFORMATION
  Report Type: 
  Country: None (occurrence: None)
  Receive Date: 20110817
  Receipt Date: 20110812
  Transmission Date: 20111222
  Serious: Yes (Hospitalization, Other)
  Sender: FDA-Public Use
  Company Number: US-MERCK-1105USA00585

PATIENT
  Age: 78 Year
  Sex: Female

DRUGS (6)
  1. FOLIC ACID [Concomitant]
     Route: 065
     Dates: start: 20090708, end: 20101001
  2. FOSAMAX [Suspect]
     Indication: OSTEOPOROSIS
     Route: 048
     Dates: start: 19960101, end: 20101201
  3. VITAMIN D (UNSPECIFIED) [Concomitant]
     Route: 065
  4. ESOMEPRAZOLE [Concomitant]
     Route: 065
  5. [THERAPY UNSPECIFIED] [Concomitant]
     Route: 065
  6. CALCIUM (UNSPECIFIED) [Concomitant]
     Route: 065

REACTIONS (15)
  - BLOOD CHOLESTEROL INCREASED [None]
  - DIABETES MELLITUS [None]
  - TOOTH DISORDER [None]
  - ORAL DISORDER [None]
  - FEMUR FRACTURE [None]
  - CAROTID ARTERY DISEASE [None]
  - BACK DISORDER [None]
  - GINGIVAL DISORDER [None]
  - RENAL CANCER [None]
  - PANCREATITIS [None]
  - OSTEOPOROSIS [None]
  - ANGIOPATHY [None]
  - GASTROOESOPHAGEAL REFLUX DISEASE [None]
  - ARTHROPATHY [None]
  - CARDIOVASCULAR DISORDER [None]
